FAERS Safety Report 5499888-5 (Version None)
Quarter: 2007Q4

REPORT INFORMATION
  Report Type: 
  Country: None (occurrence: None)
  Receive Date: 20071026
  Receipt Date: 20071016
  Transmission Date: 20080405
  Serious: Yes (Other)
  Sender: FDA-Public Use
  Company Number: US-PFIZER INC-2007086857

PATIENT
  Sex: Female
  Weight: 63.5 kg

DRUGS (3)
  1. LYRICA [Suspect]
     Indication: CHEST PAIN
  2. LYRICA [Suspect]
     Indication: PAIN IN JAW
  3. ADVIL [Concomitant]

REACTIONS (7)
  - BACK PAIN [None]
  - CONSTIPATION [None]
  - DRUG INEFFECTIVE [None]
  - LIPOSUCTION [None]
  - PAIN IN EXTREMITY [None]
  - URINARY TRACT INFECTION [None]
  - VISION BLURRED [None]
